FAERS Safety Report 14011778 (Version 1)
Quarter: 2017Q3

REPORT INFORMATION
  Report Type: Spontaneous
  Country: IT (occurrence: IT)
  Receive Date: 20170926
  Receipt Date: 20170926
  Transmission Date: 20171128
  Serious: Yes (Other)
  Sender: FDA-Public Use
  Company Number: IT-EISAI MEDICAL RESEARCH-EC-2017-031312

PATIENT
  Age: 77 Year
  Sex: Male

DRUGS (3)
  1. LENVATINIB [Suspect]
     Active Substance: LENVATINIB
     Dosage: DOSING PROGRESSIVELY TAPERED DOWN
     Route: 048
  2. LENVATINIB [Suspect]
     Active Substance: LENVATINIB
     Indication: THYROID CANCER
     Route: 048
  3. LENVATINIB [Suspect]
     Active Substance: LENVATINIB
     Route: 048

REACTIONS (4)
  - Haemorrhagic tumour necrosis [Recovered/Resolved]
  - Fatigue [Not Recovered/Not Resolved]
  - Tracheal haemorrhage [Recovered/Resolved]
  - Superinfection [Recovered/Resolved]
